FAERS Safety Report 21947586 (Version 2)
Quarter: 2023Q1

REPORT INFORMATION
  Report Type: Report from Study
  Country: GB (occurrence: None)
  Receive Date: 20230202
  Receipt Date: 20230214
  Transmission Date: 20230417
  Serious: Yes (Other)
  Sender: FDA-Public Use
  Company Number: GB-Merck Healthcare KGaA-9381020

PATIENT
  Age: 48 Year
  Sex: Female

DRUGS (2)
  1. REBIF [Suspect]
     Active Substance: INTERFERON BETA-1A
     Indication: Multiple sclerosis
     Dosage: CARTRIDGES
     Route: 058
     Dates: start: 20200101
  2. ACETAMINOPHEN [Concomitant]
     Active Substance: ACETAMINOPHEN
     Indication: Product used for unknown indication

REACTIONS (5)
  - Gait disturbance [Unknown]
  - Fall [Unknown]
  - Loss of consciousness [Unknown]
  - Mean cell haemoglobin increased [Unknown]
  - Contusion [Unknown]

NARRATIVE: CASE EVENT DATE: 20221028
